FAERS Safety Report 25255868 (Version 1)
Quarter: 2025Q2

REPORT INFORMATION
  Report Type: Other
  Country: TR (occurrence: TR)
  Receive Date: 20250430
  Receipt Date: 20250430
  Transmission Date: 20250717
  Serious: Yes (Hospitalization, Other)
  Sender: PL DEVELOPMENTS
  Company Number: TR-P+L Developments of Newyork Corporation-2175900

PATIENT
  Age: 12 Year
  Sex: Male

DRUGS (1)
  1. NAPROXEN SODIUM [Suspect]
     Active Substance: NAPROXEN SODIUM
     Indication: Product used for unknown indication

REACTIONS (1)
  - Stevens-Johnson syndrome [Unknown]
